FAERS Safety Report 17350956 (Version 6)
Quarter: 2022Q4

REPORT INFORMATION
  Report Type: Report from Study
  Country: JP (occurrence: JP)
  Receive Date: 20200130
  Receipt Date: 20221118
  Transmission Date: 20230113
  Serious: Yes (Death, Life-Threatening)
  Sender: FDA-Public Use
  Company Number: JP-PFIZER INC-2020043997

PATIENT
  Age: 48 Year
  Sex: Female
  Weight: 44.3 kg

DRUGS (1)
  1. BESPONSA [Suspect]
     Active Substance: INOTUZUMAB OZOGAMICIN
     Indication: Acute lymphocytic leukaemia refractory
     Dosage: 0.8 MG/M2, 1X/DAY, CYCLE 1
     Route: 041
     Dates: start: 20200121, end: 20200121

REACTIONS (2)
  - Neoplasm progression [Fatal]
  - Gastrointestinal haemorrhage [Not Recovered/Not Resolved]

NARRATIVE: CASE EVENT DATE: 20200126
